FAERS Safety Report 23688630 (Version 3)
Quarter: 2024Q2

REPORT INFORMATION
  Report Type: Spontaneous
  Country: US (occurrence: US)
  Receive Date: 20240329
  Receipt Date: 20240418
  Transmission Date: 20240716
  Serious: No
  Sender: FDA-Public Use
  Company Number: US-PFIZER INC-PV202400041705

PATIENT
  Age: 53 Year
  Sex: Female

DRUGS (1)
  1. IBRANCE [Suspect]
     Active Substance: PALBOCICLIB
     Dosage: 100 MG
     Dates: start: 20240323

REACTIONS (4)
  - Nausea [Unknown]
  - Flatulence [Unknown]
  - Diarrhoea [Unknown]
  - Sputum increased [Unknown]

NARRATIVE: CASE EVENT DATE: 20240323
